FAERS Safety Report 5137500-5 (Version None)
Quarter: 2006Q4

REPORT INFORMATION
  Report Type: 
  Country: None (occurrence: None)
  Receive Date: 20061030
  Receipt Date: 20051110
  Transmission Date: 20070319
  Serious: No
  Sender: FDA-Public Use
  Company Number: US-GLAXOSMITHKLINE-A0581803A

PATIENT
  Age: 85 Year
  Sex: Female

DRUGS (11)
  1. ADVAIR HFA [Suspect]
     Indication: ASTHMA
     Dosage: 1PUFF TWICE PER DAY
     Route: 055
     Dates: start: 20060906
  2. ACCOLATE [Concomitant]
  3. COZAAR [Concomitant]
  4. POTASSIUM ACETATE [Concomitant]
  5. EVISTA [Concomitant]
  6. PREDNISONE TAB [Concomitant]
  7. ALBUTEROL [Concomitant]
  8. POTASSIUM CHLORIDE [Concomitant]
  9. ASPIRIN [Concomitant]
  10. CALCIUM GLUCONATE [Concomitant]
  11. M.V.I. [Concomitant]

REACTIONS (6)
  - BONE DENSITY DECREASED [None]
  - DRUG INEFFECTIVE [None]
  - DYSPNOEA [None]
  - MEDICATION ERROR [None]
  - PHARMACEUTICAL PRODUCT COMPLAINT [None]
  - SALIVARY HYPERSECRETION [None]
